FAERS Safety Report 23267855 (Version 1)
Quarter: 2023Q4

REPORT INFORMATION
  Report Type: Spontaneous
  Country: US (occurrence: None)
  Receive Date: 20231205
  Receipt Date: 20231205
  Transmission Date: 20240110
  Serious: Yes (Other)
  Sender: FDA-Public Use
  Company Number: None

PATIENT
  Age: 63 Year
  Sex: Male
  Weight: 76.5 kg

DRUGS (1)
  1. TADALAFIL [Suspect]
     Active Substance: TADALAFIL
     Dates: start: 20231116, end: 20231121

REACTIONS (3)
  - Headache [None]
  - Abdominal pain upper [None]
  - Pain [None]

NARRATIVE: CASE EVENT DATE: 20231122
